FAERS Safety Report 15362669 (Version 2)
Quarter: 2018Q3

REPORT INFORMATION
  Report Type: Spontaneous
  Country: JP (occurrence: JP)
  Receive Date: 20180907
  Receipt Date: 20180914
  Transmission Date: 20181010
  Serious: Yes (Disabling)
  Sender: FDA-Public Use
  Company Number: JP-ASTRAZENECA-2018SE93025

PATIENT
  Age: 80 Year
  Sex: Female

DRUGS (13)
  1. PREMINENT [Concomitant]
     Active Substance: HYDROCHLOROTHIAZIDE\LOSARTAN POTASSIUM
     Indication: CHRONIC GASTRITIS
     Dosage: DOSE UNKNOWN, LOW DOSE
     Route: 048
     Dates: start: 20150811
  2. NEXIUM [Suspect]
     Active Substance: ESOMEPRAZOLE MAGNESIUM
     Indication: CHRONIC GASTRITIS
     Route: 048
     Dates: start: 20180703, end: 20180707
  3. AZULFIDINE EN?TABS [Suspect]
     Active Substance: SULFASALAZINE
     Indication: CHRONIC GASTRITIS
     Route: 048
     Dates: start: 20180622, end: 20180703
  4. AZULFIDINE EN?TABS [Suspect]
     Active Substance: SULFASALAZINE
     Indication: CHRONIC GASTRITIS
     Route: 048
     Dates: start: 20180704, end: 20180707
  5. GASMOTIN [Concomitant]
     Active Substance: MOSAPRIDE CITRATE
     Indication: CHRONIC GASTRITIS
     Route: 048
     Dates: start: 20120206
  6. PREDNISOLONE. [Concomitant]
     Active Substance: PREDNISOLONE
     Indication: RHEUMATOID ARTHRITIS
     Route: 048
     Dates: start: 20180622
  7. AMARYL [Concomitant]
     Active Substance: GLIMEPIRIDE
     Indication: CHRONIC GASTRITIS
     Route: 048
     Dates: start: 20141007
  8. BETANIS [Concomitant]
     Active Substance: MIRABEGRON
     Indication: CHRONIC GASTRITIS
     Route: 048
     Dates: start: 20171219
  9. PREDNISOLONE. [Concomitant]
     Active Substance: PREDNISOLONE
     Indication: CHRONIC GASTRITIS
     Route: 048
     Dates: start: 20180605, end: 20180621
  10. PREDNISOLONE. [Concomitant]
     Active Substance: PREDNISOLONE
     Indication: RHEUMATOID ARTHRITIS
     Route: 048
     Dates: start: 20180605, end: 20180621
  11. ONGLYZA [Concomitant]
     Active Substance: SAXAGLIPTIN HYDROCHLORIDE
     Indication: CHRONIC GASTRITIS
     Route: 048
     Dates: start: 20131105
  12. CELECOX [Concomitant]
     Active Substance: CELECOXIB
     Indication: CHRONIC GASTRITIS
     Route: 048
     Dates: start: 20171212
  13. PREDNISOLONE. [Concomitant]
     Active Substance: PREDNISOLONE
     Indication: CHRONIC GASTRITIS
     Route: 048
     Dates: start: 20180622

REACTIONS (3)
  - Dyspnoea [Recovered/Resolved]
  - Erythema [Unknown]
  - Generalised oedema [Recovered/Resolved]

NARRATIVE: CASE EVENT DATE: 20180707
